FAERS Safety Report 5702160-9 (Version None)
Quarter: 2008Q2

REPORT INFORMATION
  Report Type: 
  Country: None (occurrence: None)
  Receive Date: 20080411
  Receipt Date: 20080403
  Transmission Date: 20081010
  Serious: Yes (Other)
  Sender: FDA-Public Use
  Company Number: PHHY2008NL04772

PATIENT
  Sex: Female

DRUGS (2)
  1. FORADIL [Suspect]
     Dosage: 12 UG, BID
     Dates: start: 20050221
  2. ATROVENT [Suspect]
     Dosage: 20 UG, TID
     Dates: start: 20050203

REACTIONS (3)
  - HAEMATOMA [None]
  - OEDEMA PERIPHERAL [None]
  - PHARYNGEAL OEDEMA [None]
